FAERS Safety Report 8896308 (Version 1)
Quarter: 2012Q4

REPORT INFORMATION
  Report Type: Spontaneous
  Country: US (occurrence: None)
  Receive Date: 20121106
  Receipt Date: 20121106
  Transmission Date: 20130627
  Serious: Yes (Hospitalization)
  Sender: FDA-Public Use
  Company Number: None

PATIENT
  Age: 83 Year
  Sex: Male

DRUGS (1)
  1. REVLIMID [Suspect]
     Indication: MULTIPLE MYELOMA
     Dosage: 10mg, qdx21d/28d, orally
     Route: 048

REACTIONS (4)
  - Plasma cell myeloma [None]
  - Neoplasm recurrence [None]
  - Failure to thrive [None]
  - Anaemia [None]
